FAERS Safety Report 20085857 (Version 1)
Quarter: 2021Q4

REPORT INFORMATION
  Report Type: Spontaneous
  Country: CN (occurrence: CN)
  Receive Date: 20211118
  Receipt Date: 20211118
  Transmission Date: 20220303
  Serious: Yes (Other)
  Sender: FDA-Public Use
  Company Number: CN-PFIZER INC-202101528108

PATIENT
  Age: 81 Year
  Sex: Male

DRUGS (3)
  1. PIPERACILLIN SODIUM\TAZOBACTAM SODIUM [Suspect]
     Active Substance: PIPERACILLIN SODIUM\TAZOBACTAM SODIUM
     Indication: Pneumonia
     Dosage: 4.5 G, 3X/DAY
     Route: 041
     Dates: start: 20210903, end: 20210917
  2. BUTYLPHTHALIDE [Suspect]
     Active Substance: BUTYLPHTHALIDE
     Dosage: UNK
     Dates: start: 20210908, end: 20210915
  3. SODIUM CHLORIDE [Concomitant]
     Active Substance: SODIUM CHLORIDE
     Indication: Vehicle solution use
     Dosage: 100 ML, 3X/DAY
     Route: 041
     Dates: start: 20210903, end: 20210917

REACTIONS (5)
  - Dermatitis allergic [Recovering/Resolving]
  - Rash [Recovering/Resolving]
  - Macule [Recovering/Resolving]
  - Erythema [Recovering/Resolving]
  - Transaminases increased [Unknown]

NARRATIVE: CASE EVENT DATE: 20210915
